FAERS Safety Report 20120069 (Version 2)
Quarter: 2021Q4

REPORT INFORMATION
  Report Type: Spontaneous
  Country: US (occurrence: US)
  Receive Date: 20211126
  Receipt Date: 20211224
  Transmission Date: 20220303
  Serious: No
  Sender: FDA-Public Use
  Company Number: US-BIOGEN-2021BI01057952

PATIENT
  Sex: Female

DRUGS (3)
  1. TYSABRI [Suspect]
     Active Substance: NATALIZUMAB
     Indication: Multiple sclerosis
     Route: 065
     Dates: start: 20210316, end: 20210901
  2. TYSABRI [Suspect]
     Active Substance: NATALIZUMAB
     Route: 065
     Dates: start: 20211004
  3. TYSABRI [Suspect]
     Active Substance: NATALIZUMAB
     Route: 042

REACTIONS (9)
  - Mood altered [Not Recovered/Not Resolved]
  - Pericardial effusion [Unknown]
  - Blood pressure increased [Unknown]
  - Fluid intake reduced [Unknown]
  - Dehydration [Unknown]
  - Throat tightness [Unknown]
  - Irritability [Unknown]
  - Decreased appetite [Unknown]
  - Pruritus [Unknown]
